FAERS Safety Report 21766532 (Version 2)
Quarter: 2022Q4

REPORT INFORMATION
  Report Type: Spontaneous
  Country: CO (occurrence: CO)
  Receive Date: 20221222
  Receipt Date: 20221230
  Transmission Date: 20230113
  Serious: No
  Sender: FDA-Public Use
  Company Number: CO-009507513-2212COL005019

PATIENT
  Age: 61 Year
  Sex: Female

DRUGS (2)
  1. MOLNUPIRAVIR [Suspect]
     Active Substance: MOLNUPIRAVIR
     Indication: Post-acute COVID-19 syndrome
     Dosage: 800 MG EVERY 12 HOURS FOR 5 DAYS
     Route: 048
  2. MOLNUPIRAVIR [Suspect]
     Active Substance: MOLNUPIRAVIR
     Indication: COVID-19 treatment
     Dosage: 800 MG EVERY 12 HOURS FOR 10 DAYS
     Route: 048

REACTIONS (8)
  - Post-acute COVID-19 syndrome [Recovering/Resolving]
  - Weight decreased [Recovering/Resolving]
  - Asthenia [Recovering/Resolving]
  - Lung infiltration [Recovering/Resolving]
  - SARS-CoV-2 test positive [Unknown]
  - Diarrhoea [Recovering/Resolving]
  - Product use issue [Unknown]
  - Product use in unapproved indication [Unknown]
